FAERS Safety Report 10800704 (Version 3)
Quarter: 2015Q2

REPORT INFORMATION
  Report Type: Spontaneous
  Country: JP (occurrence: JP)
  Receive Date: 20150216
  Receipt Date: 20150429
  Transmission Date: 20150821
  Serious: Yes (Hospitalization, Other)
  Sender: FDA-Public Use
  Company Number: JP-SA-2015SA012978

PATIENT
  Age: 49 Year
  Sex: Female

DRUGS (6)
  1. FLUOROURACIL. [Suspect]
     Active Substance: FLUOROURACIL
     Indication: RECTAL CANCER
     Dosage: BOLUS
     Route: 040
     Dates: start: 201008, end: 201008
  2. ELPLAT [Suspect]
     Active Substance: OXALIPLATIN
     Indication: COLORECTAL CANCER
     Route: 041
     Dates: start: 201008, end: 201202
  3. CALCIUM LEVOFOLINATE [Concomitant]
     Active Substance: LEVOLEUCOVORIN CALCIUM
     Route: 041
     Dates: start: 201008, end: 201202
  4. FLUOROURACIL. [Suspect]
     Active Substance: FLUOROURACIL
     Indication: RECTAL CANCER
     Dosage: DAY 1-2; CONTINUOUS INFUSION.
     Route: 041
     Dates: start: 201008, end: 201202
  5. AVASTIN [Suspect]
     Active Substance: BEVACIZUMAB
     Indication: RECTAL CANCER
     Route: 041
     Dates: start: 201008, end: 201202
  6. ALPRAZOLAM. [Concomitant]
     Active Substance: ALPRAZOLAM

REACTIONS (17)
  - Gastric haemorrhage [Unknown]
  - Respiratory rate decreased [Unknown]
  - Altered state of consciousness [Unknown]
  - Hypothermia [Unknown]
  - Disseminated intravascular coagulation [Unknown]
  - Metabolic acidosis [Unknown]
  - Faeces discoloured [Unknown]
  - Blood pressure decreased [Unknown]
  - Splenomegaly [Unknown]
  - Gastric varices [Unknown]
  - Peripheral coldness [Unknown]
  - Anaemia [Unknown]
  - White blood cell count increased [Unknown]
  - Platelet count decreased [Unknown]
  - Gastric varices haemorrhage [Unknown]
  - Heart rate increased [Unknown]
  - Ulcer [Unknown]

NARRATIVE: CASE EVENT DATE: 201012
